FAERS Safety Report 9228174 (Version 1)
Quarter: 2013Q2

REPORT INFORMATION
  Report Type: Spontaneous
  Country: US (occurrence: None)
  Receive Date: 20130411
  Receipt Date: 20130411
  Transmission Date: 20140414
  Serious: Yes (Disabling)
  Sender: FDA-Public Use
  Company Number: None

PATIENT
  Age: 69 Year
  Sex: Female
  Weight: 97.52 kg

DRUGS (2)
  1. LEVOFLOXACIN [Suspect]
     Indication: BRONCHITIS
     Dates: start: 20130218, end: 20130226
  2. LEVOFLOXACIN [Suspect]
     Indication: URINARY TRACT INFECTION
     Dates: start: 20130218, end: 20130226

REACTIONS (4)
  - Arthralgia [None]
  - Myalgia [None]
  - Muscular weakness [None]
  - Activities of daily living impaired [None]
